FAERS Safety Report 14966165 (Version 1)
Quarter: 2018Q2

REPORT INFORMATION
  Report Type: Spontaneous
  Country: JP (occurrence: JP)
  Receive Date: 20180603
  Receipt Date: 20180603
  Transmission Date: 20180711
  Serious: Yes (Other)
  Sender: FDA-Public Use
  Company Number: PHJP2018JP011621

PATIENT
  Age: 47 Year
  Sex: Female

DRUGS (4)
  1. GILENYA [Suspect]
     Active Substance: FINGOLIMOD HYDROCHLORIDE
     Dosage: FIVE TIMES PER WEEK
     Route: 048
  2. GILENYA [Suspect]
     Active Substance: FINGOLIMOD HYDROCHLORIDE
     Indication: SECONDARY PROGRESSIVE MULTIPLE SCLEROSIS
     Dosage: 0.5 MG, SEQUENTIAL DAYS
     Route: 048
  3. GILENYA [Suspect]
     Active Substance: FINGOLIMOD HYDROCHLORIDE
     Dosage: SIX TIMES PER WEEK
     Route: 048
  4. GILENYA [Suspect]
     Active Substance: FINGOLIMOD HYDROCHLORIDE
     Dosage: THREE TIMES PER WEEK
     Route: 048

REACTIONS (4)
  - Prescribed underdose [Unknown]
  - CD4/CD8 ratio decreased [Unknown]
  - Lymphocyte count decreased [Recovering/Resolving]
  - Expanded disability status scale score increased [Unknown]
